FAERS Safety Report 9297998 (Version 3)
Quarter: 2013Q2

REPORT INFORMATION
  Report Type: Report from Study
  Country: US (occurrence: US)
  Receive Date: 20130520
  Receipt Date: 20130620
  Transmission Date: 20140414
  Serious: Yes (Other)
  Sender: FDA-Public Use
  Company Number: PHEH2013US010854

PATIENT
  Age: 68 Year
  Sex: Female

DRUGS (22)
  1. RECLAST [Suspect]
     Dosage: UNK UKN, YEARLY
     Route: 042
     Dates: start: 201203
  2. RECLAST [Suspect]
     Dosage: UNK UKN, YEARLY
     Route: 042
     Dates: start: 201305
  3. PERCOCET [Concomitant]
     Dosage: 1 DF, UNK
  4. LAMICTAL [Concomitant]
     Dosage: 50 MG, BID
  5. DEXILANT [Concomitant]
     Dosage: 60 MG, BID
  6. BYSTOLIC [Concomitant]
     Dosage: 5 MG, QD
  7. NORVASC [Concomitant]
     Dosage: 10 MG, BID
  8. ZOCOR [Concomitant]
     Dosage: 10 MG, QD
  9. RESTASIS [Concomitant]
     Dosage: UNK UKN, BID
  10. PLAVIX [Concomitant]
     Dosage: 75 MG, QD
  11. VALIUM [Concomitant]
     Dosage: 5 MG, BID
  12. TUMS [Concomitant]
     Dosage: UNK UKN, UNK
  13. STOOL SOFTENER [Concomitant]
     Dosage: 03 DF, EVERY NIGHT AT BEDTIME
  14. LAXATIVE [Concomitant]
     Dosage: 03 DF, EVERY NIGHT AT BEDTIME
  15. MULTIVITAMINS [Concomitant]
     Dosage: UNK UKN, UNK
  16. VITAMIN D [Concomitant]
     Dosage: UNK
  17. VITAMIN E [Concomitant]
     Dosage: UNK UKN, UNK
  18. LASIX [Concomitant]
     Indication: SWELLING
     Dosage: UNK UKN, PRN
  19. POTASSIUM [Concomitant]
     Indication: SWELLING
     Dosage: UNK UKN, UNK
  20. NEURONTIN [Concomitant]
     Indication: PAIN IN EXTREMITY
     Dosage: 300 MG, ONCE DAILY AS NEEDED
  21. LAMOTRIGINE [Concomitant]
     Dosage: 50 MG, BID
  22. CALCIUM [Concomitant]

REACTIONS (13)
  - Fall [Unknown]
  - Limb crushing injury [Unknown]
  - Procedural haemorrhage [Unknown]
  - Urine output decreased [Unknown]
  - Agitation [Unknown]
  - Nervousness [Unknown]
  - Eye swelling [Unknown]
  - Swelling face [Unknown]
  - Local swelling [Unknown]
  - Influenza like illness [Recovered/Resolved]
  - Chills [Recovered/Resolved]
  - Pain [Recovered/Resolved]
  - Drug ineffective [Unknown]
